FAERS Safety Report 9797191 (Version 1)
Quarter: 2014Q1

REPORT INFORMATION
  Report Type: Spontaneous
  Country: US (occurrence: US)
  Receive Date: 20140106
  Receipt Date: 20140106
  Transmission Date: 20141002
  Serious: No
  Sender: FDA-Public Use
  Company Number: US-009507513-1401USA001099

PATIENT
  Sex: Female
  Weight: 52.61 kg

DRUGS (1)
  1. IMPLANON [Suspect]
     Indication: CONTRACEPTION
     Dosage: 1 DF, FREQUENCY: EVERY 3 YEARS
     Route: 059
     Dates: start: 20101111

REACTIONS (8)
  - Influenza [Unknown]
  - Migraine [Unknown]
  - Vaginal haemorrhage [Unknown]
  - Mood swings [Unknown]
  - Implant site pain [Unknown]
  - Nausea [Unknown]
  - Breast pain [Unknown]
  - Incorrect drug administration duration [Unknown]
